FAERS Safety Report 8055738-4 (Version None)
Quarter: 2012Q1

REPORT INFORMATION
  Report Type: 
  Country: None (occurrence: None)
  Receive Date: 20120112
  Receipt Date: 20111228
  Transmission Date: 20120608
  Serious: Yes (Other)
  Sender: FDA-Public Use
  Company Number: FK201103126

PATIENT
  Age: 64 Year
  Sex: Male

DRUGS (11)
  1. METHYLPREDNISOLONE [Concomitant]
  2. PAMIDRONATE DISODIUM [Suspect]
     Indication: PRODUCT USED FOR UNKNOWN INDICATION
     Dosage: 90 MG, MONTHLY, INTRAVENOUS (NOT OTHERWISE SPECIFIED)
     Route: 042
     Dates: start: 20000301
  3. BORTEZOMIB [Concomitant]
  4. MELPHALAN HYDROCHLORIDE [Concomitant]
  5. DEXAMETHASONE [Concomitant]
  6. PREDNISONE TAB [Concomitant]
  7. ZOLEDRONIC ACID [Suspect]
     Dosage: 4 MG, MONTHLY, INTRAVENOUS (NOT OTHERWISE SPECIFIED)
     Route: 042
     Dates: start: 20020301
  8. THALIDOMIDE [Concomitant]
  9. VINCRISTINE [Concomitant]
  10. DOXORUBICIN HCL [Concomitant]
  11. CLARITHROMYCIN [Concomitant]

REACTIONS (10)
  - MULTIPLE MYELOMA [None]
  - RIB FRACTURE [None]
  - FRACTURE DELAYED UNION [None]
  - NO THERAPEUTIC RESPONSE [None]
  - PAIN IN EXTREMITY [None]
  - STRESS FRACTURE [None]
  - OEDEMA PERIPHERAL [None]
  - DISCOMFORT [None]
  - FOOT FRACTURE [None]
  - NEOPLASM PROGRESSION [None]
